FAERS Safety Report 24533016 (Version 1)
Quarter: 2024Q4

REPORT INFORMATION
  Report Type: Spontaneous
  Country: AU (occurrence: AU)
  Receive Date: 20241022
  Receipt Date: 20241022
  Transmission Date: 20250115
  Serious: Yes (Other)
  Sender: AMGEN
  Company Number: AU-AMGEN-AUSSP2024205218

PATIENT
  Age: 65 Year
  Sex: Female
  Weight: 70.3 kg

DRUGS (4)
  1. EVENITY [Suspect]
     Active Substance: ROMOSOZUMAB-AQQG
     Indication: Osteoporosis
     Dosage: UNK, QMO
     Route: 065
     Dates: start: 202304, end: 202404
  2. CITALOPRAM [Concomitant]
     Active Substance: CITALOPRAM
     Indication: Anxiety
     Dosage: UNK
     Route: 065
  3. ZOLEDRONIC ACID [Concomitant]
     Active Substance: ZOLEDRONIC ACID
     Dosage: UNK
     Route: 040
     Dates: start: 202208
  4. ALENDRONATE [Concomitant]
     Active Substance: ALENDRONATE SODIUM
     Dosage: UNK
     Route: 065
     Dates: start: 2022

REACTIONS (5)
  - Pathological fracture [Unknown]
  - Atypical fracture [Unknown]
  - Blood parathyroid hormone increased [Unknown]
  - Urine calcium increased [Unknown]
  - Stress fracture [Unknown]

NARRATIVE: CASE EVENT DATE: 20230501
